FAERS Safety Report 9782405 (Version 3)
Quarter: 2014Q1

REPORT INFORMATION
  Report Type: Spontaneous
  Country: IT (occurrence: IT)
  Receive Date: 20131226
  Receipt Date: 20140211
  Transmission Date: 20141002
  Serious: Yes (Other)
  Sender: FDA-Public Use
  Company Number: PHHY2013IT150197

PATIENT
  Age: 86 Year
  Sex: Male

DRUGS (11)
  1. DICLOFENAC [Suspect]
     Indication: PAIN IN EXTREMITY
     Dosage: 50 MG, QD
     Route: 048
     Dates: start: 20131101, end: 20131201
  2. DELTACORTENE [Interacting]
     Indication: CHRONIC OBSTRUCTIVE PULMONARY DISEASE
     Dosage: 5 MG, QD
     Route: 048
     Dates: start: 20131101, end: 20131201
  3. CARDIRENE [Interacting]
     Indication: PROPHYLAXIS
     Dosage: 1 DF, QD
     Route: 048
     Dates: start: 20090101, end: 20131201
  4. EUTIROX [Concomitant]
     Dosage: 1 DF, QD
     Route: 048
  5. MODURETIC [Concomitant]
     Dosage: UNK UKN, UNK
  6. CONGESCOR [Concomitant]
     Route: 048
  7. FORADIL [Concomitant]
     Dosage: UNK UKN, UNK
     Route: 055
  8. VENTOLIN SOLUTION [Concomitant]
     Dosage: UNK UKN, UNK
     Route: 055
  9. XANAX [Concomitant]
     Dosage: UNK UKN, UNK
  10. LANSOPRAZOLE [Concomitant]
  11. FLIXOTIDE [Concomitant]
     Route: 055

REACTIONS (3)
  - Drug interaction [Recovering/Resolving]
  - Gastritis [Recovering/Resolving]
  - Melaena [Recovering/Resolving]
